FAERS Safety Report 8933342 (Version 4)
Quarter: 2013Q1

REPORT INFORMATION
  Report Type: Spontaneous
  Country: US (occurrence: US)
  Receive Date: 20121128
  Receipt Date: 20130201
  Transmission Date: 20140127
  Serious: Yes (Hospitalization, Disabling, Other)
  Sender: FDA-Public Use
  Company Number: US-009507513-1210USA008266

PATIENT
  Sex: Female
  Weight: 69.84 kg

DRUGS (5)
  1. FOSAMAX [Suspect]
     Indication: OSTEOPENIA
     Dosage: 70 MG, UNK
     Dates: start: 200104, end: 200602
  2. FOSAMAX [Suspect]
     Indication: OSTEOPOROSIS
  3. PREMPRO [Concomitant]
     Indication: MENOPAUSE
     Dosage: UNK
     Dates: start: 200508, end: 201007
  4. FOSAMAX [Suspect]
     Indication: OSTEOPENIA
  5. BONIVA [Suspect]
     Dosage: UNK
     Dates: start: 200603, end: 201009

REACTIONS (17)
  - Femur fracture [Unknown]
  - Osteoporosis [Unknown]
  - Stress fracture [Unknown]
  - Low turnover osteopathy [Unknown]
  - Open reduction of fracture [Unknown]
  - Rosacea [Unknown]
  - Stress fracture [Unknown]
  - Anxiety [Unknown]
  - Lithotripsy [Unknown]
  - Stress fracture [Unknown]
  - Anaemia postoperative [Unknown]
  - Iron deficiency anaemia [Unknown]
  - Nephrolithiasis [Unknown]
  - Pulmonary hypertension [Unknown]
  - Granuloma [Unknown]
  - Polypectomy [Unknown]
  - Mammoplasty [Unknown]
